FAERS Safety Report 23601462 (Version 1)
Quarter: 2024Q1

REPORT INFORMATION
  Report Type: Spontaneous
  Country: US (occurrence: US)
  Receive Date: 20240306
  Receipt Date: 20240306
  Transmission Date: 20240410
  Serious: Yes (Other)
  Sender: FDA-Public Use
  Company Number: US-ABBVIE-5660541

PATIENT

DRUGS (2)
  1. ALPHAGAN P [Suspect]
     Active Substance: BRIMONIDINE TARTRATE
     Indication: Product used for unknown indication
     Route: 047
  2. PRED FORTE [Suspect]
     Active Substance: PREDNISOLONE ACETATE
     Indication: Product used for unknown indication
     Route: 047

REACTIONS (6)
  - Anterior chamber cell [Unknown]
  - Inflammation [Unknown]
  - Endophthalmitis [Unknown]
  - Anterior chamber fibrin [Unknown]
  - Eye disorder [Recovered/Resolved]
  - Toxic anterior segment syndrome [Unknown]
